FAERS Safety Report 16367997 (Version 1)
Quarter: 2019Q2

REPORT INFORMATION
  Report Type: Spontaneous
  Country: CN (occurrence: CN)
  Receive Date: 20190529
  Receipt Date: 20190529
  Transmission Date: 20190711
  Serious: Yes (Other)
  Sender: FDA-Public Use
  Company Number: CN-BAXTER-2019BAX010464

PATIENT
  Age: 49 Year
  Sex: Female
  Weight: 75 kg

DRUGS (4)
  1. 0.9% SODIUM CHLORIDE INJECTION [Suspect]
     Active Substance: SODIUM CHLORIDE
     Indication: MEDICATION DILUTION
     Dosage: FIRST CHEMOTHERAPY. ENDOXAN 1000 MG + NS 50 ML
     Route: 042
     Dates: start: 20190327, end: 20190327
  2. PHARMORUBICIN RD [Suspect]
     Active Substance: EPIRUBICIN
     Indication: BREAST CANCER FEMALE
     Dosage: FIRST CHEMOTHERAPY. PHARMORUBICIN RD 140 MG + NS 100 ML
     Route: 041
     Dates: start: 20190327, end: 20190327
  3. 0.9% SODIUM CHLORIDE INJECTION [Suspect]
     Active Substance: SODIUM CHLORIDE
     Dosage: FIRST CHEMOTHERAPY. PHARMORUBICIN RD 140 MG + NS 100 ML
     Route: 041
     Dates: start: 20190327, end: 20190327
  4. ENDOXAN [Suspect]
     Active Substance: CYCLOPHOSPHAMIDE
     Indication: BREAST CANCER FEMALE
     Dosage: FIRST CHEMOTHERAPY. ENDOXAN 1000 MG + NS (NORMAL SALINE) 50 ML
     Route: 042
     Dates: start: 20190327, end: 20190327

REACTIONS (2)
  - Leukopenia [Recovered/Resolved]
  - Agranulocytosis [Recovered/Resolved]

NARRATIVE: CASE EVENT DATE: 20190409
